FAERS Safety Report 20479875 (Version 6)
Quarter: 2023Q4

REPORT INFORMATION
  Report Type: Other
  Country: AT (occurrence: None)
  Receive Date: 20220216
  Receipt Date: 20231228
  Transmission Date: 20240109
  Serious: Yes (Hospitalization, Other)
  Sender: FDA-Public Use
  Company Number: AT-ROCHE-3016595

PATIENT
  Age: 47 Year
  Sex: Female

DRUGS (38)
  1. HERCEPTIN [Suspect]
     Active Substance: TRASTUZUMAB
     Indication: HER2 positive breast cancer
     Route: 042
     Dates: start: 20180924, end: 20180924
  2. HERCEPTIN [Suspect]
     Active Substance: TRASTUZUMAB
     Route: 042
     Dates: start: 20181015, end: 20200910
  3. HERCEPTIN [Suspect]
     Active Substance: TRASTUZUMAB
     Dosage: MOST RECENT DOSE PRIOR TO THE EVENT:03/NOV/2021
     Route: 041
     Dates: start: 20210512
  4. KADCYLA [Suspect]
     Active Substance: ADO-TRASTUZUMAB EMTANSINE
     Indication: HER2 positive breast cancer
     Dosage: LAST DRUG ADMINISTRATION PRIOR TO AE- 21/APR/2021
     Route: 042
     Dates: start: 20201001
  5. PERJETA [Suspect]
     Active Substance: PERTUZUMAB
     Indication: HER2 positive breast cancer
     Route: 042
     Dates: start: 20180924, end: 20180924
  6. PERJETA [Suspect]
     Active Substance: PERTUZUMAB
     Dosage: MOST RECENT DOSE PRIOR TO THE EVENT: 10/SEP/2020
     Route: 042
     Dates: start: 20181015
  7. XELODA [Suspect]
     Active Substance: CAPECITABINE
     Indication: HER2 positive breast cancer
     Route: 048
     Dates: start: 20210512, end: 20210513
  8. XELODA [Suspect]
     Active Substance: CAPECITABINE
     Dosage: MOST RECENT DOSE PRIOR TO THE EVENT: 24/NOV/2021
     Route: 048
     Dates: start: 20210515
  9. XGEVA [Suspect]
     Active Substance: DENOSUMAB
     Indication: HER2 positive breast cancer
     Dosage: MOST RECENT DOSE PRIOR TO THE EVENT: 18/SEP/2018
     Route: 058
     Dates: start: 20180918
  10. TAXOTERE [Suspect]
     Active Substance: DOCETAXEL
     Indication: HER2 positive breast cancer
     Dosage: MOST RECENT DOSE ON 23/JAN/2019
     Route: 042
     Dates: start: 20180924
  11. IRBINITINIB [Suspect]
     Active Substance: IRBINITINIB
     Indication: HER2 positive breast cancer
     Route: 048
     Dates: start: 20210512, end: 20210513
  12. IRBINITINIB [Suspect]
     Active Substance: IRBINITINIB
     Route: 048
     Dates: start: 20210515, end: 20211124
  13. FAM-TRASTUZUMAB DERUXTECAN-NXKI [Suspect]
     Active Substance: FAM-TRASTUZUMAB DERUXTECAN-NXKI
     Indication: HER2 positive breast cancer
     Dosage: MOST RECENT DOSE ON 09/MAR/2022, 23/JAN/2019
     Route: 042
     Dates: start: 20211213
  14. PRAM (AUSTRIA) [Concomitant]
     Route: 048
  15. ALPRAZOLAM [Concomitant]
     Active Substance: ALPRAZOLAM
     Dosage: PRN (AS NEEDED)
     Route: 048
     Dates: start: 20181114
  16. ASCORBIC ACID\CALCIUM PHOSPHATE\CHOLECALCIFEROL\CITRIC ACID MONOHYDRAT [Concomitant]
     Active Substance: ASCORBIC ACID\CALCIUM PHOSPHATE\CHOLECALCIFEROL\CITRIC ACID MONOHYDRATE
     Route: 048
     Dates: start: 20190827
  17. DRONABINOL [Concomitant]
     Active Substance: DRONABINOL
     Route: 048
     Dates: start: 20190123
  18. DRONABINOL [Concomitant]
     Active Substance: DRONABINOL
     Route: 048
     Dates: start: 20210304
  19. KEPPRA [Concomitant]
     Active Substance: LEVETIRACETAM
     Indication: Epilepsy
     Route: 048
     Dates: start: 20210513
  20. LOVENOX [Concomitant]
     Active Substance: ENOXAPARIN SODIUM
     Route: 058
     Dates: start: 20211124
  21. DEXAMETHASONE [Concomitant]
     Active Substance: DEXAMETHASONE
     Route: 048
     Dates: start: 20181016, end: 20181017
  22. DEXAMETHASONE [Concomitant]
     Active Substance: DEXAMETHASONE
     Dosage: OTHER EVERY 3 WEEKS FOR TWO DAYS
     Route: 048
     Dates: start: 20220124
  23. DEXAMETHASONE [Concomitant]
     Active Substance: DEXAMETHASONE
     Dosage: OTHER EVERY 3 WEEKS BEFORE EACH CHEMOTHERAPY
     Route: 042
     Dates: start: 20211213
  24. ZOFRAN [Concomitant]
     Active Substance: ONDANSETRON HYDROCHLORIDE
     Dosage: PRN (AS NEEDED)
     Route: 048
     Dates: start: 20181016, end: 20190308
  25. ZOFRAN [Concomitant]
     Active Substance: ONDANSETRON HYDROCHLORIDE
     Dosage: 1.00 AMPULE
     Route: 042
     Dates: start: 20180924, end: 20210421
  26. ZOFRAN [Concomitant]
     Active Substance: ONDANSETRON HYDROCHLORIDE
     Dosage: EVERY 3 WEEKS FOR 2 DAYS
     Route: 048
     Dates: start: 20220124
  27. ZOFRAN [Concomitant]
     Active Substance: ONDANSETRON HYDROCHLORIDE
     Dosage: EVERY 3 WEEKS BEFORE EACH CHEMOTHERAPY  21/APR/2021
     Route: 042
     Dates: start: 20211213
  28. TRAMADOL [Concomitant]
     Active Substance: TRAMADOL\TRAMADOL HYDROCHLORIDE
     Route: 048
     Dates: start: 2018, end: 20190514
  29. TRAMADOL [Concomitant]
     Active Substance: TRAMADOL\TRAMADOL HYDROCHLORIDE
     Dosage: PRN (AS NEEDED
     Route: 048
     Dates: start: 2018, end: 20190308
  30. XGEVA [Concomitant]
     Active Substance: DENOSUMAB
     Route: 013
     Dates: start: 20180918
  31. NOVALGIN (METAMIZOLE SODIUM) [Concomitant]
     Active Substance: METAMIZOLE SODIUM
     Dosage: PRN (AS NEEDED)
     Route: 048
     Dates: start: 2018, end: 20210309
  32. ERYTHROPOIETIN [Concomitant]
     Active Substance: ERYTHROPOIETIN
     Route: 058
     Dates: start: 20181016, end: 20190308
  33. EMEND [Concomitant]
     Active Substance: APREPITANT
     Dosage: OTHER 4 DAYS CONSECUTIVELY EVERY 4 WEEKS
     Route: 048
     Dates: start: 20181114, end: 20190125
  34. TAMOXIFEN [Concomitant]
     Active Substance: TAMOXIFEN
     Route: 048
     Dates: start: 20200325, end: 20200930
  35. MODERNA COVID-19 VACCINE [Concomitant]
     Active Substance: ELASOMERAN
     Route: 030
     Dates: start: 20210315
  36. MODERNA COVID-19 VACCINE [Concomitant]
     Active Substance: ELASOMERAN
     Route: 030
     Dates: start: 20210412
  37. TEMESTA [Concomitant]
     Indication: Epilepsy
     Route: 042
     Dates: start: 20210513
  38. POTASSIUM CHLORIDE [Concomitant]
     Active Substance: POTASSIUM CHLORIDE

REACTIONS (5)
  - Syncope [Recovered/Resolved]
  - Soft tissue infection [Recovered/Resolved]
  - Hypokalaemia [Recovered/Resolved]
  - Severe acute respiratory syndrome [Recovered/Resolved]
  - Diarrhoea [Recovered/Resolved]

NARRATIVE: CASE EVENT DATE: 20211123
